FAERS Safety Report 4394856-9 (Version None)
Quarter: 2004Q3

REPORT INFORMATION
  Report Type: 
  Country: None (occurrence: None)
  Receive Date: 20040707
  Receipt Date: 20040628
  Transmission Date: 20050211
  Serious: Yes (Death)
  Sender: FDA-Public Use
  Company Number: K200400904

PATIENT
  Age: 63 Year
  Sex: Male
  Weight: 90 kg

DRUGS (4)
  1. ALTACE [Suspect]
     Indication: BLOOD PRESSURE INCREASED
     Dosage: ORAL
     Route: 048
     Dates: start: 20040607, end: 20040614
  2. KLEXANE (HEPARIN-FRACTION, SODIUM SALT) INJECTION, 40MG [Suspect]
     Indication: THROMBOSIS PROPHYLAXIS
     Dosage: 40 MG, BID, SUBCUTANEOUS
     Route: 058
     Dates: start: 20040301, end: 20040614
  3. AGRYLIN (ANAGRELIDE HYDROCHLORIDE) 0.5 MG [Suspect]
     Indication: THROMBOCYTHAEMIA
     Dosage: 1.5 MG (3X0.5) MG, TID, ORAL
     Route: 048
     Dates: start: 20040101, end: 20040614
  4. ACETYLSALICYLIC ACID SRT [Concomitant]

REACTIONS (5)
  - BLOOD PRESSURE SYSTOLIC INCREASED [None]
  - CEREBRAL HAEMORRHAGE [None]
  - CEREBRAL INFARCTION [None]
  - LABORATORY TEST ABNORMAL [None]
  - TRANSIENT ISCHAEMIC ATTACK [None]
